FAERS Safety Report 14309038 (Version 2)
Quarter: 2018Q3

REPORT INFORMATION
  Report Type: Report from Study
  Country: CA (occurrence: CA)
  Receive Date: 20171220
  Receipt Date: 20180722
  Transmission Date: 20181010
  Serious: No
  Sender: FDA-Public Use
  Company Number: PHHY2017CA112772

PATIENT
  Age: 42 Year
  Sex: Female

DRUGS (2)
  1. GILENYA [Suspect]
     Active Substance: FINGOLIMOD HYDROCHLORIDE
     Indication: PRODUCT USED FOR UNKNOWN INDICATION
     Dosage: UNK
     Route: 048
     Dates: start: 20170727
  2. SOLU?MEDROL [Concomitant]
     Active Substance: METHYLPREDNISOLONE SODIUM SUCCINATE
     Indication: PRODUCT USED FOR UNKNOWN INDICATION
     Dosage: UNK
     Route: 065
     Dates: start: 20140512

REACTIONS (4)
  - Expanded disability status scale [Unknown]
  - Secretion discharge [Unknown]
  - Heart rate decreased [Recovered/Resolved]
  - Mass [Unknown]

NARRATIVE: CASE EVENT DATE: 2017
